FAERS Safety Report 20805275 (Version 2)
Quarter: 2022Q3

REPORT INFORMATION
  Report Type: Spontaneous
  Country: US (occurrence: US)
  Receive Date: 20220509
  Receipt Date: 20220810
  Transmission Date: 20221026
  Serious: No
  Sender: FDA-Public Use
  Company Number: US-BRISTOL-MYERS SQUIBB COMPANY-2022-032237

PATIENT
  Age: 69 Year
  Sex: Female
  Weight: 56.699 kg

DRUGS (1)
  1. REVLIMID [Suspect]
     Active Substance: LENALIDOMIDE
     Indication: Marginal zone lymphoma
     Dosage: 1 CAPSULE DAILY FOR  21 DAYS 7 DAYS OFF.
     Route: 048
     Dates: start: 20211006

REACTIONS (2)
  - Hepatic enzyme increased [Recovered/Resolved]
  - Neutrophil count decreased [Not Recovered/Not Resolved]

NARRATIVE: CASE EVENT DATE: 20220401
